FAERS Safety Report 7820098-8 (Version None)
Quarter: 2011Q4

REPORT INFORMATION
  Report Type: 
  Country: None (occurrence: None)
  Receive Date: 20111018
  Receipt Date: 20111017
  Transmission Date: 20120403
  Serious: Yes (Other)
  Sender: FDA-Public Use
  Company Number: US-PFIZER INC-2011248798

PATIENT
  Sex: Female
  Weight: 71.202 kg

DRUGS (3)
  1. CHANTIX [Interacting]
     Dosage: 1 MG, 2X/DAY
     Route: 048
     Dates: start: 20110101
  2. CHANTIX [Suspect]
     Indication: SMOKING CESSATION THERAPY
     Dosage: 0.5 MG, DAILY
     Route: 048
     Dates: start: 20110101, end: 20110101
  3. LEXAPRO [Interacting]
     Indication: DEPRESSION
     Dosage: 10 MG, DAILY
     Route: 048

REACTIONS (2)
  - LOSS OF CONSCIOUSNESS [None]
  - ALCOHOL INTERACTION [None]
